FAERS Safety Report 17631183 (Version 1)
Quarter: 2020Q2

REPORT INFORMATION
  Report Type: Spontaneous
  Country: JP (occurrence: JP)
  Receive Date: 20200406
  Receipt Date: 20200406
  Transmission Date: 20200713
  Serious: Yes (Hospitalization, Other)
  Sender: FDA-Public Use
  Company Number: JP-PFIZER INC-2020135799

PATIENT
  Age: 38 Year
  Sex: Female

DRUGS (16)
  1. QUETIAPINE FUMARATE. [Suspect]
     Active Substance: QUETIAPINE FUMARATE
     Indication: SUICIDE ATTEMPT
     Dosage: 1350 MG (54 TABLETS), SINGLE
     Route: 048
  2. SILECE [Suspect]
     Active Substance: FLUNITRAZEPAM
     Indication: SUICIDE ATTEMPT
     Dosage: 14 MG (14 TABLETS), SINGLE
     Route: 048
  3. SEROQUEL [Suspect]
     Active Substance: QUETIAPINE FUMARATE
     Indication: SUICIDE ATTEMPT
     Dosage: 1700 MG (68 TABLETS), SINGLE
     Route: 048
  4. MOSAPRIDE CITRATE [Suspect]
     Active Substance: MOSAPRIDE CITRATE
     Indication: SUICIDE ATTEMPT
     Dosage: 10 MG (2 TABLETS), SINGLE
     Route: 048
  5. FLUNITRAZEPAM [Suspect]
     Active Substance: FLUNITRAZEPAM
     Indication: SUICIDE ATTEMPT
     Dosage: 6 MG (6 TABLETS), SINGLE
     Route: 048
  6. LEXOTAN [Suspect]
     Active Substance: BROMAZEPAM
     Indication: SUICIDE ATTEMPT
     Dosage: 16 MG (8 TABLETS), SINGLE
     Route: 048
  7. REFLEX [Suspect]
     Active Substance: MIRTAZAPINE
     Indication: SUICIDE ATTEMPT
     Dosage: 225 MG (15 TABLETS), SINGLE
     Route: 048
  8. FLUNITRAZEPAM [Suspect]
     Active Substance: FLUNITRAZEPAM
     Indication: SUICIDE ATTEMPT
     Dosage: 276 MG (138 TABLETS), SINGLE
     Route: 048
  9. MIANSERINE HCL [Suspect]
     Active Substance: MIANSERIN HYDROCHLORIDE
     Indication: SUICIDE ATTEMPT
     Dosage: 210 MG (7 TABLETS), SINGLE
     Route: 048
  10. EVE A [Suspect]
     Active Substance: APRONALIDE\CAFFEINE\IBUPROFEN
     Indication: SUICIDE ATTEMPT
     Dosage: 20 DF, SINGLE (20 TABLETS IBUPROFEN 75 MG, ALLYLISOPROPYLACETYLUREA 30 MG, ANHYDROUS CAFFEINE 40 MG
     Route: 048
  11. SERTRALINE HCL [Suspect]
     Active Substance: SERTRALINE HYDROCHLORIDE
     Indication: SUICIDE ATTEMPT
     Dosage: 150 MG (6 TABLETS), SINGLE
     Route: 048
  12. ETHYL LOFLAZEPATE [Suspect]
     Active Substance: ETHYL LOFLAZEPATE
     Indication: SUICIDE ATTEMPT
     Dosage: 22 MG (22 TABLETS), SINGLE
     Route: 048
  13. MIANSERINE HCL [Suspect]
     Active Substance: MIANSERIN HYDROCHLORIDE
     Indication: SUICIDE ATTEMPT
     Dosage: 720 MG (72 TABLETS), SINGLE
     Route: 048
  14. QUETIAPINE FUMARATE. [Suspect]
     Active Substance: QUETIAPINE FUMARATE
     Indication: SUICIDE ATTEMPT
     Dosage: 100 MG (1 TABLET), SINGLE
     Route: 048
  15. SENIRAN [Suspect]
     Active Substance: BROMAZEPAM
     Indication: SUICIDE ATTEMPT
     Dosage: 28 MG (14 TABLETS), SINGLE
  16. BROTIZOLAM [Suspect]
     Active Substance: BROTIZOLAM
     Indication: SUICIDE ATTEMPT
     Dosage: 34.75 MG (139 TABLETS), SINGLE
     Route: 048

REACTIONS (4)
  - Intentional overdose [Recovering/Resolving]
  - Altered state of consciousness [Recovering/Resolving]
  - Toxicity to various agents [Recovering/Resolving]
  - Suicide attempt [Recovering/Resolving]
